FAERS Safety Report 23897411 (Version 1)
Quarter: 2024Q2

REPORT INFORMATION
  Report Type: Spontaneous
  Country: US (occurrence: US)
  Receive Date: 20240524
  Receipt Date: 20240524
  Transmission Date: 20240715
  Serious: No
  Sender: FDA-Public Use
  Company Number: US-BIOVITRUM-2024-US-007547

PATIENT
  Age: 72 Year
  Sex: Male

DRUGS (2)
  1. VONJO [Suspect]
     Active Substance: PACRITINIB
     Indication: Myeloproliferative neoplasm
     Dosage: DAILY
     Route: 048
  2. VONJO [Suspect]
     Active Substance: PACRITINIB
     Dosage: DAILY
     Route: 048

REACTIONS (2)
  - Platelet count decreased [Unknown]
  - Off label use [Not Recovered/Not Resolved]
